FAERS Safety Report 8433960-2 (Version None)
Quarter: 2012Q2

REPORT INFORMATION
  Report Type: 
  Country: None (occurrence: None)
  Receive Date: 20120323
  Receipt Date: 20111110
  Transmission Date: 20120825
  Serious: Yes (Hospitalization)
  Sender: FDA-Public Use
  Company Number: 163-21880-11072035

PATIENT
  Age: 64 Year
  Sex: Female

DRUGS (9)
  1. REVLIMID [Suspect]
     Indication: MULTIPLE MYELOMA
     Dosage: 5 MG, 1 IN 1 D, PO, 10 MG, 1 IN 1 D, PO
     Route: 048
     Dates: start: 20110701, end: 20110701
  2. REVLIMID [Suspect]
     Indication: MULTIPLE MYELOMA
     Dosage: 5 MG, 1 IN 1 D, PO, 10 MG, 1 IN 1 D, PO
     Route: 048
     Dates: start: 20100101, end: 20110701
  3. BQCTRIM (BACTRIM) [Concomitant]
  4. XANAX [Concomitant]
  5. HYDROCODONE BITARTRATE [Concomitant]
  6. VALTREX [Concomitant]
  7. ZANTAC [Concomitant]
  8. MAGNESIUM (MAGNESIUM) [Concomitant]
  9. IBUPROFEN [Concomitant]

REACTIONS (8)
  - MULTIPLE MYELOMA [None]
  - PROTEIN TOTAL ABNORMAL [None]
  - NAUSEA [None]
  - DECREASED APPETITE [None]
  - DYSGEUSIA [None]
  - PANCYTOPENIA [None]
  - WEIGHT DECREASED [None]
  - HYPERCALCAEMIA [None]
